FAERS Safety Report 5993128-6 (Version None)
Quarter: 2008Q4

REPORT INFORMATION
  Report Type: 
  Country: None (occurrence: None)
  Receive Date: 20081212
  Receipt Date: 20080603
  Transmission Date: 20090506
  Serious: No
  Sender: FDA-Public Use
  Company Number: US-AMGEN-KDL284304

PATIENT
  Age: 30 Year
  Sex: Female

DRUGS (2)
  1. ENBREL [Suspect]
     Indication: PSORIASIS
     Dates: start: 20080505
  2. WELLBUTRIN [Concomitant]

REACTIONS (3)
  - CELLULITIS [None]
  - INJECTION SITE PRURITUS [None]
  - INJECTION SITE SWELLING [None]
